FAERS Safety Report 23581796 (Version 1)
Quarter: 2024Q1

REPORT INFORMATION
  Report Type: Report from Study
  Country: US (occurrence: US)
  Receive Date: 20240229
  Receipt Date: 20240229
  Transmission Date: 20240409
  Serious: Yes (Hospitalization)
  Sender: FDA-Public Use
  Company Number: US-MIRATI-MT2023PM05092

PATIENT
  Sex: Female

DRUGS (5)
  1. KRAZATI [Suspect]
     Active Substance: ADAGRASIB
     Indication: Appendix cancer
     Dosage: 600 MG, BID
     Route: 048
     Dates: start: 20230916
  2. KRAZATI [Suspect]
     Active Substance: ADAGRASIB
     Dosage: 600 MG, BID
     Route: 048
     Dates: start: 202309, end: 202309
  3. KRAZATI [Suspect]
     Active Substance: ADAGRASIB
     Dosage: 200 MG, BID
     Route: 048
     Dates: start: 20230926, end: 20231003
  4. KRAZATI [Suspect]
     Active Substance: ADAGRASIB
     Dosage: 600 MG, QD
     Route: 048
     Dates: start: 202310, end: 20231010
  5. KRAZATI [Suspect]
     Active Substance: ADAGRASIB
     Dosage: 200 MG, BID
     Route: 048
     Dates: start: 202310

REACTIONS (5)
  - Fluid retention [Recovered/Resolved]
  - Renal impairment [Recovering/Resolving]
  - Oxygen saturation decreased [Recovering/Resolving]
  - Dyspnoea [Recovered/Resolved]
  - Swelling [Recovering/Resolving]

NARRATIVE: CASE EVENT DATE: 20231010
